FAERS Safety Report 8947801 (Version 1)
Quarter: 2012Q4

REPORT INFORMATION
  Report Type: Spontaneous
  Country: US (occurrence: None)
  Receive Date: 20121203
  Receipt Date: 20121203
  Transmission Date: 20130627
  Serious: Yes (Other)
  Sender: FDA-Public Use
  Company Number: None

PATIENT
  Age: 56 Year
  Sex: Male
  Weight: 75 kg

DRUGS (1)
  1. PRALATREXATE [Suspect]
     Indication: MYCOSIS
     Dosage: 15 MG Other IV
     Route: 042
     Dates: start: 20111101

REACTIONS (6)
  - Mucosal inflammation [None]
  - Pain [None]
  - Hypophagia [None]
  - Haematemesis [None]
  - Nausea [None]
  - Abdominal pain [None]
